FAERS Safety Report 9710938 (Version 1)
Quarter: 2013Q4

REPORT INFORMATION
  Report Type: Spontaneous
  Country: US (occurrence: US)
  Receive Date: 20131126
  Receipt Date: 20131126
  Transmission Date: 20140711
  Serious: Yes (Other)
  Sender: FDA-Public Use
  Company Number: US-BRISTOL-MYERS SQUIBB COMPANY-19056217

PATIENT
  Age: 69 Year
  Sex: Male
  Weight: 98.86 kg

DRUGS (1)
  1. BYETTA [Suspect]
     Dosage: DOSE VALUE:5MCG TWICE A DAY

REACTIONS (2)
  - Loss of consciousness [Unknown]
  - Blood glucose decreased [Unknown]
